FAERS Safety Report 23746814 (Version 2)
Quarter: 2024Q2

REPORT INFORMATION
  Report Type: Spontaneous
  Country: ES (occurrence: ES)
  Receive Date: 20240416
  Receipt Date: 20240418
  Transmission Date: 20240716
  Serious: Yes (Life-Threatening, Other)
  Sender: FDA-Public Use
  Company Number: ES-002147023-NVSC2024ES079359

PATIENT
  Age: 58 Year
  Sex: Female

DRUGS (2)
  1. LUTATHERA [Suspect]
     Active Substance: LUTETIUM OXODOTREOTIDE LU-177
     Indication: Neuroendocrine tumour
     Dosage: 7.4 GBQ (4 DOSE)
     Route: 042
     Dates: start: 20161202, end: 20170608
  2. LUTATHERA [Suspect]
     Active Substance: LUTETIUM OXODOTREOTIDE LU-177
     Indication: Metastases to liver
     Dosage: 7.4 GBQ (2 DOSE)
     Route: 042
     Dates: start: 20200923, end: 20201216

REACTIONS (2)
  - Acute myeloid leukaemia [Not Recovered/Not Resolved]
  - Off label use [Unknown]

NARRATIVE: CASE EVENT DATE: 20200901
